FAERS Safety Report 5376330-6 (Version None)
Quarter: 2007Q3

REPORT INFORMATION
  Report Type: 
  Country: None (occurrence: None)
  Receive Date: 20070702
  Receipt Date: 20070620
  Transmission Date: 20080115
  Serious: Yes (Other)
  Sender: FDA-Public Use
  Company Number: US-PFIZER INC-2007052420

PATIENT
  Age: 84 Year
  Sex: Female
  Weight: 44.1 kg

DRUGS (3)
  1. CHANTIX [Suspect]
     Indication: EX-SMOKER
  2. PLENDIL [Concomitant]
  3. LOPRESSOR [Concomitant]

REACTIONS (1)
  - SWOLLEN TONGUE [None]
